FAERS Safety Report 22517759 (Version 3)
Quarter: 2023Q2

REPORT INFORMATION
  Report Type: Spontaneous
  Country: US (occurrence: US)
  Receive Date: 20230604
  Receipt Date: 20230607
  Transmission Date: 20230721
  Serious: Yes (Other)
  Sender: FDA-Public Use
  Company Number: US-BEIGENE-BGN-2023-005093

PATIENT

DRUGS (3)
  1. BRUKINSA [Suspect]
     Active Substance: ZANUBRUTINIB
     Indication: Chronic lymphocytic leukaemia
     Dosage: 2 PILLS DAILY IN FIRST WEEK, 3 PILLS DAILY IN SECOND WEEK, 4 PILLS DAILY FROM THIRD WEEK
     Route: 048
     Dates: start: 20230213, end: 20230530
  2. RITUXAN [Concomitant]
     Active Substance: RITUXIMAB
     Dosage: UNK
     Dates: start: 20230517
  3. ASPIRIN [Concomitant]
     Active Substance: ASPIRIN
     Indication: Cardiac disorder

REACTIONS (9)
  - Thrombosis [Unknown]
  - Peripheral swelling [Unknown]
  - Contusion [Unknown]
  - White blood cell count abnormal [Unknown]
  - Platelet count decreased [Unknown]
  - Joint swelling [Unknown]
  - Arthralgia [Unknown]
  - Splenomegaly [Unknown]
  - Underdose [Unknown]

NARRATIVE: CASE EVENT DATE: 20230213
